FAERS Safety Report 14652881 (Version 1)
Quarter: 2018Q1

REPORT INFORMATION
  Report Type: Spontaneous
  Country: US (occurrence: US)
  Receive Date: 20180319
  Receipt Date: 20180319
  Transmission Date: 20180509
  Serious: Yes (Other)
  Sender: FDA-Public Use
  Company Number: US-009507513-1803USA005649

PATIENT
  Sex: Female

DRUGS (7)
  1. KEYTRUDA [Suspect]
     Active Substance: PEMBROLIZUMAB
     Dosage: 90 MG, EVERY 21 DAYS
     Route: 042
     Dates: start: 20170714, end: 2017
  2. KEYTRUDA [Suspect]
     Active Substance: PEMBROLIZUMAB
     Dosage: 90 MG, EVERY 21 DAYS
     Route: 042
     Dates: start: 2017, end: 2017
  3. KEYTRUDA [Suspect]
     Active Substance: PEMBROLIZUMAB
     Dosage: 90 MG, EVERY 21 DAYS
     Route: 042
     Dates: start: 20171116, end: 20171116
  4. KEYTRUDA [Suspect]
     Active Substance: PEMBROLIZUMAB
     Dosage: 90 MG, EVERY 21 DAYS
     Route: 042
     Dates: start: 20170814, end: 2017
  5. KEYTRUDA [Suspect]
     Active Substance: PEMBROLIZUMAB
     Dosage: 90 MG, EVERY 21 DAYS
     Route: 042
     Dates: start: 2017, end: 2017
  6. KEYTRUDA [Suspect]
     Active Substance: PEMBROLIZUMAB
     Dosage: 90 MG, EVERY 21 DAYS
     Route: 042
     Dates: start: 2017, end: 2017
  7. KEYTRUDA [Suspect]
     Active Substance: PEMBROLIZUMAB
     Dosage: 90 MG, EVERY 21 DAYS
     Route: 042
     Dates: start: 2017, end: 2017

REACTIONS (1)
  - Malignant neoplasm progression [Unknown]
